FAERS Safety Report 4543054-4 (Version None)
Quarter: 2004Q4

REPORT INFORMATION
  Report Type: 
  Country: None (occurrence: None)
  Receive Date: 20041229
  Receipt Date: 20041215
  Transmission Date: 20050328
  Serious: Yes (Hospitalization)
  Sender: FDA-Public Use
  Company Number: 2004115971

PATIENT
  Age: 39 Year
  Sex: Female
  Weight: 74.6 kg

DRUGS (4)
  1. HYDROCORTISONE [Suspect]
     Indication: ILL-DEFINED DISORDER
     Dosage: 15 MG (1 IN 1 D), ORAL
     Route: 048
  2. ESTRADIOL [Suspect]
     Indication: ILL-DEFINED DISORDER
     Dosage: (1 IN 1 D), ORAL
     Route: 048
  3. LEVOTHYROXINE SODIUM [Suspect]
     Indication: ILL-DEFINED DISORDER
     Dosage: 75 MCG (1 IN 1 D), ORAL
     Route: 048
  4. GENOTROPIN PEN (GENOTROPIN PEN) [Concomitant]

REACTIONS (2)
  - ADRENAL INSUFFICIENCY [None]
  - GASTROENTERITIS [None]
